FAERS Safety Report 21087575 (Version 3)
Quarter: 2022Q3

REPORT INFORMATION
  Report Type: Other
  Country: PT (occurrence: PT)
  Receive Date: 20220715
  Receipt Date: 20220816
  Transmission Date: 20221026
  Serious: Yes (Death, Other)
  Sender: FDA-Public Use
  Company Number: PT-CHEPLA-2022005629

PATIENT
  Age: 60 Year
  Sex: Female

DRUGS (9)
  1. GANCICLOVIR [Suspect]
     Active Substance: GANCICLOVIR
     Indication: Cytomegalovirus infection
     Route: 065
  2. GANCICLOVIR [Suspect]
     Active Substance: GANCICLOVIR
     Indication: Epstein-Barr virus infection
  3. GANCICLOVIR [Suspect]
     Active Substance: GANCICLOVIR
     Indication: Graft versus host disease in gastrointestinal tract
  4. METHYLPREDNISOLONE [Suspect]
     Active Substance: METHYLPREDNISOLONE
     Indication: Cytomegalovirus infection
     Route: 065
  5. METHYLPREDNISOLONE [Suspect]
     Active Substance: METHYLPREDNISOLONE
     Indication: Epstein-Barr virus infection
  6. METHYLPREDNISOLONE [Suspect]
     Active Substance: METHYLPREDNISOLONE
     Indication: Graft versus host disease in gastrointestinal tract
  7. RITUXIMAB [Suspect]
     Active Substance: RITUXIMAB
     Indication: Graft versus host disease in gastrointestinal tract
     Route: 065
  8. RITUXIMAB [Suspect]
     Active Substance: RITUXIMAB
     Indication: Epstein-Barr virus infection
  9. RITUXIMAB [Suspect]
     Active Substance: RITUXIMAB
     Indication: Cytomegalovirus infection

REACTIONS (3)
  - Acute hepatic failure [Unknown]
  - Off label use [Unknown]
  - Death [Fatal]
